FAERS Safety Report 8786478 (Version 1)
Quarter: 2012Q4

REPORT INFORMATION
  Report Type: 
  Country: CO (occurrence: CO)
  Receive Date: 20120914
  Receipt Date: 20120914
  Transmission Date: 20130627
  Serious: Yes (Other)
  Sender: FDA-Public Use
  Company Number: CO-PFIZER INC-2012225773

PATIENT
  Sex: Male

DRUGS (1)
  1. DETRUSITOL [Suspect]
     Route: 065

REACTIONS (1)
  - Deafness [Unknown]
